FAERS Safety Report 4836583-7 (Version None)
Quarter: 2005Q4

REPORT INFORMATION
  Report Type: 
  Country: None (occurrence: None)
  Receive Date: 20051121
  Receipt Date: 20051107
  Transmission Date: 20060501
  Serious: Yes (Hospitalization, Other)
  Sender: FDA-Public Use
  Company Number: 2005153490

PATIENT
  Age: 80 Year
  Sex: Male
  Weight: 83.9154 kg

DRUGS (3)
  1. DETROL LA [Suspect]
     Indication: HYPERTONIC BLADDER
     Dosage: 4 MG (4 MG, 1 IN 1 D), ORAL
     Route: 048
     Dates: start: 20051029
  2. PROSCAR [Suspect]
     Indication: PROSTATE CANCER
     Dosage: (5 MG)
     Dates: start: 20020101
  3. IMIPRAMINE [Suspect]
     Indication: INCONTINENCE
     Dates: start: 20020101

REACTIONS (3)
  - DIVERTICULITIS [None]
  - DRUG INTERACTION [None]
  - HAEMORRHAGE [None]
